FAERS Safety Report 18544772 (Version 1)
Quarter: 2020Q4

REPORT INFORMATION
  Report Type: Spontaneous
  Country: US (occurrence: US)
  Receive Date: 20201124
  Receipt Date: 20201124
  Transmission Date: 20210114
  Serious: Yes (Hospitalization)
  Sender: FDA-Public Use
  Company Number: None

PATIENT
  Sex: Female
  Weight: 117 kg

DRUGS (4)
  1. MERCAPTOPURINE 50MG [Suspect]
     Active Substance: MERCAPTOPURINE
     Route: 048
     Dates: end: 20201104
  2. METHOTREXATE 10MG [Suspect]
     Active Substance: METHOTREXATE
     Route: 048
     Dates: end: 20201104
  3. VINCRISTINE SULFATE 2MG [Suspect]
     Active Substance: VINCRISTINE SULFATE
     Dosage: EVERY 3 MONTHS
     Dates: end: 20201104
  4. PREDNISONE 10MG [Suspect]
     Active Substance: PREDNISONE
     Route: 048
     Dates: end: 20201104

REACTIONS (4)
  - Headache [None]
  - Pancytopenia [None]
  - Vomiting [None]
  - Nausea [None]

NARRATIVE: CASE EVENT DATE: 20201105
